FAERS Safety Report 20720389 (Version 1)
Quarter: 2022Q2

REPORT INFORMATION
  Report Type: Spontaneous
  Country: HR (occurrence: HR)
  Receive Date: 20220418
  Receipt Date: 20220418
  Transmission Date: 20220721
  Serious: Yes (Life-Threatening)
  Sender: FDA-Public Use
  Company Number: None

PATIENT
  Sex: Female
  Weight: 50 kg

DRUGS (1)
  1. EUTHYROX [Suspect]
     Active Substance: LEVOTHYROXINE SODIUM
     Indication: Autoimmune thyroiditis
     Route: 048
     Dates: start: 2021

REACTIONS (5)
  - Chills [Recovering/Resolving]
  - Burning sensation [Recovering/Resolving]
  - Dizziness [Recovering/Resolving]
  - Tachycardia [Recovering/Resolving]
  - Hypertension [Recovering/Resolving]

NARRATIVE: CASE EVENT DATE: 20211001
